FAERS Safety Report 8615272-7 (Version None)
Quarter: 2012Q3

REPORT INFORMATION
  Report Type: 
  Country: None (occurrence: None)
  Receive Date: 20120815
  Receipt Date: 20120815
  Transmission Date: 20120928
  Serious: Yes (Hospitalization)
  Sender: FDA-Public Use
  Company Number: None

PATIENT
  Age: 64 Year
  Sex: Female
  Weight: 77.1115 kg

DRUGS (1)
  1. VIIBRYD [Suspect]
     Indication: DEPRESSION
     Dosage: 40 MG DAILY PO
     Route: 048
     Dates: start: 20120612, end: 20120813

REACTIONS (3)
  - PARAESTHESIA [None]
  - NERVOUS SYSTEM DISORDER [None]
  - DRUG DOSE OMISSION [None]
